FAERS Safety Report 21691936 (Version 4)
Quarter: 2023Q1

REPORT INFORMATION
  Report Type: Report from Study
  Country: CA (occurrence: CA)
  Receive Date: 20221207
  Receipt Date: 20230120
  Transmission Date: 20230418
  Serious: Yes (Hospitalization, Other)
  Sender: FDA-Public Use
  Company Number: CA-JNJFOC-20220316897

PATIENT
  Age: 39 Year
  Sex: Female
  Weight: 45 kg

DRUGS (2)
  1. STELARA [Suspect]
     Active Substance: USTEKINUMAB
     Indication: Crohn^s disease
     Dosage: THE PATIENT RECEIVED DOSE ON 19-OCT-2017, 01-FEB-2020 AND 24-OCT-2022. ?EXPIRY DATE: 31-MAR-2025, 01
     Route: 058
     Dates: start: 20170920
  2. STELARA [Suspect]
     Active Substance: USTEKINUMAB

REACTIONS (11)
  - Anal fistula infection [Unknown]
  - Rectal abscess [Unknown]
  - Postoperative abscess [Unknown]
  - Intestinal stenosis [Unknown]
  - Postoperative wound infection [Recovering/Resolving]
  - Procedural pain [Unknown]
  - Serum ferritin decreased [Unknown]
  - Vitamin B12 decreased [Unknown]
  - Stoma site irritation [Recovering/Resolving]
  - Stoma site pain [Recovering/Resolving]
  - Off label use [Unknown]

NARRATIVE: CASE EVENT DATE: 20170920
